FAERS Safety Report 11652528 (Version 1)
Quarter: 2015Q4

REPORT INFORMATION
  Report Type: Spontaneous
  Country: US (occurrence: None)
  Receive Date: 20151021
  Receipt Date: 20151021
  Transmission Date: 20160304
  Serious: Yes (Hospitalization)
  Sender: FDA-Public Use
  Company Number: None

PATIENT
  Age: 66 Year
  Sex: Female
  Weight: 68.9 kg

DRUGS (10)
  1. FUROSEMIDE. [Concomitant]
     Active Substance: FUROSEMIDE
  2. NIFEDIPINE ER [Concomitant]
     Active Substance: NIFEDIPINE
  3. CARVEDILOL. [Concomitant]
     Active Substance: CARVEDILOL
  4. CLONIDINE. [Concomitant]
     Active Substance: CLONIDINE
  5. D3-50 [Concomitant]
  6. FAMOTIDINE. [Concomitant]
     Active Substance: FAMOTIDINE
  7. ANASTROZOLE. [Suspect]
     Active Substance: ANASTROZOLE
     Dates: end: 20150819
  8. MAG-OX [Concomitant]
     Active Substance: MAGNESIUM OXIDE
  9. PLAVIX [Concomitant]
     Active Substance: CLOPIDOGREL BISULFATE
  10. METOPROLOL [Concomitant]
     Active Substance: METOPROLOL

REACTIONS (2)
  - Coma [None]
  - Respiratory distress [None]

NARRATIVE: CASE EVENT DATE: 20150820
